FAERS Safety Report 13228934 (Version 1)
Quarter: 2017Q1

REPORT INFORMATION
  Report Type: Spontaneous
  Country: US (occurrence: US)
  Receive Date: 20170213
  Receipt Date: 20170213
  Transmission Date: 20170428
  Serious: Yes (Hospitalization)
  Sender: FDA-Public Use
  Company Number: US-STRIDES ARCOLAB LIMITED-2016SP016840

PATIENT

DRUGS (11)
  1. METHYLPREDNISOLONE. [Concomitant]
     Active Substance: METHYLPREDNISOLONE
     Indication: RENAL TRANSPLANT
     Dosage: UNK, THREE BOLUSES
     Route: 040
  2. MEROPENEM. [Concomitant]
     Active Substance: MEROPENEM
     Indication: URINARY TRACT INFECTION
     Dosage: UNK
  3. MEROPENEM. [Concomitant]
     Active Substance: MEROPENEM
     Indication: SEPSIS
  4. TACROLIMUS. [Suspect]
     Active Substance: TACROLIMUS
     Indication: RENAL TRANSPLANT
     Dosage: UNK
  5. TACROLIMUS. [Suspect]
     Active Substance: TACROLIMUS
     Indication: INTESTINAL TRANSPLANT
  6. DAPTOMYCIN. [Concomitant]
     Active Substance: DAPTOMYCIN
     Indication: SEPSIS
  7. DAPTOMYCIN. [Concomitant]
     Active Substance: DAPTOMYCIN
     Indication: URINARY TRACT INFECTION
     Dosage: UNK
  8. LINEZOLID. [Concomitant]
     Active Substance: LINEZOLID
     Indication: URINARY TRACT INFECTION
     Dosage: UNK
  9. METHYLPREDNISOLONE. [Concomitant]
     Active Substance: METHYLPREDNISOLONE
     Indication: INTESTINAL TRANSPLANT
  10. CEFEPIME [Concomitant]
     Active Substance: CEFEPIME HYDROCHLORIDE
     Indication: URINARY TRACT INFECTION
     Dosage: UNK
  11. LINEZOLID. [Concomitant]
     Active Substance: LINEZOLID
     Indication: SEPSIS

REACTIONS (2)
  - Renal impairment [Unknown]
  - Acute kidney injury [Unknown]
